APPROVED DRUG PRODUCT: RUBY-FILL
Active Ingredient: RUBIDIUM CHLORIDE RB-82
Strength: N/A
Dosage Form/Route: SOLUTION;INTRAVENOUS
Application: N202153 | Product #001
Applicant: JUBILANT DRAXIMAGE INC DBA JUBILANT RADIOPHARMA
Approved: Sep 30, 2016 | RLD: No | RS: No | Type: RX